FAERS Safety Report 8555614-4 (Version None)
Quarter: 2012Q3

REPORT INFORMATION
  Report Type: 
  Country: None (occurrence: None)
  Receive Date: 20120731
  Receipt Date: 20120207
  Transmission Date: 20120928
  Serious: No
  Sender: FDA-Public Use
  Company Number: US-ASTRAZENECA-2010SE42665

PATIENT
  Age: 70 Year
  Sex: Female
  Weight: 59 kg

DRUGS (1)
  1. SEROQUEL [Suspect]
     Indication: INSOMNIA
     Route: 048

REACTIONS (11)
  - THERAPEUTIC RESPONSE UNEXPECTED [None]
  - DISORIENTATION [None]
  - BALANCE DISORDER [None]
  - OFF LABEL USE [None]
  - DRUG INEFFECTIVE FOR UNAPPROVED INDICATION [None]
  - SENSATION OF HEAVINESS [None]
  - MIDDLE INSOMNIA [None]
  - ASTHENIA [None]
  - SOMNOLENCE [None]
  - RESTLESSNESS [None]
  - HYPOKINESIA [None]
